FAERS Safety Report 19626693 (Version 1)
Quarter: 2021Q3

REPORT INFORMATION
  Report Type: Spontaneous
  Country: BR (occurrence: BR)
  Receive Date: 20210729
  Receipt Date: 20210729
  Transmission Date: 20211014
  Serious: Yes (Disabling)
  Sender: FDA-Public Use
  Company Number: BR-GLAXOSMITHKLINE-BR2021158294

PATIENT
  Sex: Female

DRUGS (3)
  1. AEROLIN [Suspect]
     Active Substance: ALBUTEROL
     Indication: COUGH
     Dosage: 100 UG, 100 MCG/DOSE
     Dates: start: 2011
  2. AEROLIN [Suspect]
     Active Substance: ALBUTEROL
     Indication: WHEEZING
  3. AEROLIN [Suspect]
     Active Substance: ALBUTEROL
     Indication: FATIGUE

REACTIONS (10)
  - Glucose tolerance impaired [Unknown]
  - Anxiety [Unknown]
  - Drug ineffective for unapproved indication [Unknown]
  - Condition aggravated [Unknown]
  - Hypersensitivity [Unknown]
  - Wrong technique in device usage process [Unknown]
  - Osteoarthritis [Unknown]
  - Memory impairment [Unknown]
  - Bronchitis [Unknown]
  - Product use in unapproved indication [Unknown]
